FAERS Safety Report 17268733 (Version 2)
Quarter: 2020Q1

REPORT INFORMATION
  Report Type: Spontaneous
  Country: US (occurrence: US)
  Receive Date: 20200114
  Receipt Date: 20200207
  Transmission Date: 20200409
  Serious: No
  Sender: FDA-Public Use
  Company Number: US-ASTRAZENECA-2020SE03967

PATIENT
  Age: 51 Year
  Sex: Female
  Weight: 56.7 kg

DRUGS (3)
  1. TAGRISSO [Suspect]
     Active Substance: OSIMERTINIB
     Indication: NON-SMALL CELL LUNG CANCER
     Route: 048
     Dates: start: 20191204
  2. CALCIUM AND VITAMIN D [Concomitant]
     Active Substance: CALCIUM\VITAMIN D
     Dosage: 600 MG. 400 IU VITAMIN D TWICE A DAY
     Route: 048
  3. TESSALON PEARLS [Concomitant]
     Indication: COUGH
     Dosage: 100 MG. EVERY 8 HOURS AS NEEDED

REACTIONS (3)
  - Cough [Unknown]
  - Peripheral swelling [Recovered/Resolved]
  - Oedema peripheral [Recovered/Resolved]

NARRATIVE: CASE EVENT DATE: 202001
